FAERS Safety Report 14630552 (Version 1)
Quarter: 2018Q1

REPORT INFORMATION
  Report Type: Spontaneous
  Country: FR (occurrence: FR)
  Receive Date: 20180313
  Receipt Date: 20180313
  Transmission Date: 20180509
  Serious: Yes (Other)
  Sender: FDA-Public Use
  Company Number: FR-ALKEM LABORATORIES LIMITED-FR-ALKEM-2018-01087

PATIENT
  Age: 54 Year
  Sex: Female

DRUGS (2)
  1. MYCOPHENOLATE MOFETIL. [Suspect]
     Active Substance: MYCOPHENOLATE MOFETIL
     Indication: IMMUNOSUPPRESSION
     Dosage: UNK
     Route: 065
  2. TACROLIMUS. [Suspect]
     Active Substance: TACROLIMUS
     Indication: IMMUNOSUPPRESSION
     Dosage: UNK
     Route: 065

REACTIONS (7)
  - Dermatophytosis [Unknown]
  - Viral diarrhoea [Unknown]
  - Cytomegalovirus infection [Unknown]
  - Device related infection [Unknown]
  - Urinary tract infection [Unknown]
  - Cryptosporidiosis infection [Unknown]
  - Aspergillus infection [Unknown]
